FAERS Safety Report 4534417-1 (Version None)
Quarter: 2004Q4

REPORT INFORMATION
  Report Type: 
  Country: None (occurrence: None)
  Receive Date: 20041222
  Receipt Date: 20041129
  Transmission Date: 20050328
  Serious: Yes (Hospitalization)
  Sender: FDA-Public Use
  Company Number: JP-SOLVAY-00304004218

PATIENT
  Age: 68 Year
  Sex: Female

DRUGS (5)
  1. LUVOX [Suspect]
     Indication: OBSESSIVE-COMPULSIVE DISORDER
     Dosage: DAILY DOSE: 75 MILLIGRAM(S)
     Route: 048
     Dates: start: 20020101, end: 20040728
  2. GENERAL COLD MEDICATION [Interacting]
     Indication: ILL-DEFINED DISORDER
     Dosage: DAILY DOSE:  UNKNOWN
     Route: 065
  3. RISPERIDONE [Interacting]
     Indication: OBSESSIVE-COMPULSIVE DISORDER
     Dosage: DAILY DOSE: 3 MILLIGRAM(S)
     Route: 048
     Dates: start: 20020101, end: 20040728
  4. PAROXETINE HCL [Interacting]
     Indication: OBSESSIVE-COMPULSIVE DISORDER
     Dosage: DAILY DOSE: 40 MILLIGRAM(S)
     Route: 048
     Dates: start: 20020101, end: 20040701
  5. PAROXETINE HCL [Interacting]
     Dosage: DAILY DOSE: 10 MILLIGRAM(S)
     Route: 048
     Dates: start: 20040702, end: 20040728

REACTIONS (6)
  - AGITATION [None]
  - CONVULSION [None]
  - DRUG INTERACTION [None]
  - NASOPHARYNGITIS [None]
  - SEROTONIN SYNDROME [None]
  - TREMOR [None]
